FAERS Safety Report 7166746-X (Version None)
Quarter: 2010Q4

REPORT INFORMATION
  Report Type: 
  Country: None (occurrence: None)
  Receive Date: 20101216
  Receipt Date: 20101208
  Transmission Date: 20110411
  Serious: Yes (Other)
  Sender: FDA-Public Use
  Company Number: CH-ROCHE-741942

PATIENT
  Sex: Female
  Weight: 61 kg

DRUGS (2)
  1. HERCEPTIN [Suspect]
     Route: 042
     Dates: start: 20100101
  2. RAMIPRIL [Concomitant]

REACTIONS (1)
  - HYPERTHYROIDISM [None]
